FAERS Safety Report 12788542 (Version 1)
Quarter: 2016Q3

REPORT INFORMATION
  Report Type: Spontaneous
  Country: GR (occurrence: GR)
  Receive Date: 20160928
  Receipt Date: 20160928
  Transmission Date: 20161109
  Serious: Yes (Hospitalization)
  Sender: FDA-Public Use
  Company Number: GR-TEVA-694400ISR

PATIENT
  Age: 49 Year
  Sex: Male

DRUGS (1)
  1. FLUCONAZOLE/TEVA [Suspect]
     Active Substance: FLUCONAZOLE
     Route: 065

REACTIONS (9)
  - Human papilloma virus test positive [None]
  - Bacteraemia [Unknown]
  - Device related infection [None]
  - Oesophagitis ulcerative [None]
  - Opportunistic infection [None]
  - Therapy non-responder [None]
  - Oesophagitis [Recovering/Resolving]
  - Fungal oesophagitis [None]
  - Treatment noncompliance [None]
